FAERS Safety Report 23723392 (Version 1)
Quarter: 2024Q2

REPORT INFORMATION
  Report Type: Spontaneous
  Country: US (occurrence: None)
  Receive Date: 20240409
  Receipt Date: 20240409
  Transmission Date: 20240716
  Serious: No
  Sender: FDA-Public Use
  Company Number: None

PATIENT
  Age: 63 Year
  Sex: Male
  Weight: 78.7 kg

DRUGS (4)
  1. FLUOROURACIL [Suspect]
     Active Substance: FLUOROURACIL
  2. CAMPTOSAR [Suspect]
     Active Substance: IRINOTECAN HYDROCHLORIDE
  3. LEUCOVORIN CALCIUM [Concomitant]
  4. ELOXATIN [Suspect]
     Active Substance: OXALIPLATIN

REACTIONS (4)
  - Seizure like phenomena [None]
  - Dizziness [None]
  - Hyperhidrosis [None]
  - Pulmonary embolism [None]

NARRATIVE: CASE EVENT DATE: 20240408
